FAERS Safety Report 5988521-1 (Version None)
Quarter: 2008Q4

REPORT INFORMATION
  Report Type: 
  Country: None (occurrence: None)
  Receive Date: 20081204
  Receipt Date: 20081121
  Transmission Date: 20090506
  Serious: Yes (Other)
  Sender: FDA-Public Use
  Company Number: 230025K08IRL

PATIENT
  Sex: Female

DRUGS (2)
  1. REBIF [Suspect]
     Dosage: 22 MCG, 44 MCG
     Dates: start: 19981108, end: 20080801
  2. REBIF [Suspect]
     Dosage: 22 MCG, 44 MCG
     Dates: start: 20080822

REACTIONS (2)
  - CONDITION AGGRAVATED [None]
  - CONVULSION [None]
